FAERS Safety Report 19524735 (Version 1)
Quarter: 2021Q3

REPORT INFORMATION
  Report Type: Spontaneous
  Country: US (occurrence: US)
  Receive Date: 20210712
  Receipt Date: 20210712
  Transmission Date: 20211014
  Serious: Yes (Death)
  Sender: FDA-Public Use
  Company Number: None

PATIENT
  Sex: Male
  Weight: 63 kg

DRUGS (7)
  1. DEXAMETHASONE 4MG/ML [Concomitant]
  2. FOSAPREPITANT 150MG [Concomitant]
  3. RITUXAN [Suspect]
     Active Substance: RITUXIMAB
     Indication: B-CELL SMALL LYMPHOCYTIC LYMPHOMA
     Dosage: ?          OTHER FREQUENCY:Q21D;?
     Route: 048
  4. PALONOSETRON 0.25MG [Concomitant]
  5. VINCRISTINE [Suspect]
     Active Substance: VINCRISTINE
     Indication: B-CELL LYMPHOMA
     Dosage: ?          OTHER FREQUENCY:Q21D;?
     Route: 048
  6. CYCLOPHOSPHAMIDE 100MG VIAL [Concomitant]
  7. DIPHENHYDRAMINE 50MG/ML [Concomitant]
     Active Substance: DIPHENHYDRAMINE

REACTIONS (1)
  - Death [None]
